FAERS Safety Report 10151795 (Version 3)
Quarter: 2014Q2

REPORT INFORMATION
  Report Type: Spontaneous
  Country: US (occurrence: US)
  Receive Date: 20140505
  Receipt Date: 20140530
  Transmission Date: 20141212
  Serious: Yes (Other)
  Sender: FDA-Public Use
  Company Number: US-BEH-2014042074

PATIENT
  Age: 23 Year
  Sex: Female

DRUGS (24)
  1. IVIG [Suspect]
     Indication: IMMUNE THROMBOCYTOPENIC PURPURA
     Route: 042
  2. IVIG [Suspect]
     Indication: AUTOIMMUNE NEUTROPENIA
     Route: 042
  3. IVIG [Suspect]
     Indication: AUTOIMMUNE HAEMOLYTIC ANAEMIA
     Route: 042
  4. IVIG [Suspect]
     Indication: PNEUMONIA
     Route: 042
  5. IVIG [Suspect]
     Indication: PANCYTOPENIA
     Route: 042
  6. IVIG [Suspect]
     Indication: HYPERGAMMAGLOBULINAEMIA
     Route: 042
  7. GCSF [Suspect]
     Indication: IMMUNE THROMBOCYTOPENIC PURPURA
  8. GCSF [Suspect]
     Indication: AUTOIMMUNE NEUTROPENIA
  9. GCSF [Suspect]
     Indication: AUTOIMMUNE HAEMOLYTIC ANAEMIA
  10. GCSF [Suspect]
     Indication: PNEUMONIA
  11. GCSF [Suspect]
     Indication: PANCYTOPENIA
  12. GCSF [Suspect]
     Indication: HYPERGAMMAGLOBULINAEMIA
  13. RITUXIMAB [Suspect]
     Indication: AUTOIMMUNE NEUTROPENIA
  14. RITUXIMAB [Suspect]
     Indication: AUTOIMMUNE NEUTROPENIA
  15. RITUXIMAB [Suspect]
     Indication: AUTOIMMUNE HAEMOLYTIC ANAEMIA
  16. RITUXIMAB [Suspect]
     Indication: PNEUMONIA
  17. RITUXIMAB [Suspect]
     Indication: PANCYTOPENIA
  18. RITUXIMAB [Suspect]
     Indication: HYPERGAMMAGLOBULINAEMIA
  19. PROPHYLACTIC ANTIBIOTICS [Suspect]
     Indication: AUTOIMMUNE NEUTROPENIA
  20. PROPHYLACTIC ANTIBIOTICS [Suspect]
     Indication: AUTOIMMUNE NEUTROPENIA
  21. PROPHYLACTIC ANTIBIOTICS [Suspect]
     Indication: AUTOIMMUNE HAEMOLYTIC ANAEMIA
  22. PROPHYLACTIC ANTIBIOTICS [Suspect]
     Indication: PNEUMONIA
  23. PROPHYLACTIC ANTIBIOTICS [Suspect]
     Indication: PANCYTOPENIA
  24. PROPHYLACTIC ANTIBIOTICS [Suspect]
     Indication: HYPERGAMMAGLOBULINAEMIA

REACTIONS (2)
  - Drug ineffective for unapproved indication [Recovering/Resolving]
  - Drug effect incomplete [Recovering/Resolving]
